FAERS Safety Report 20035712 (Version 1)
Quarter: 2021Q4

REPORT INFORMATION
  Report Type: Report from Study
  Country: CH (occurrence: CH)
  Receive Date: 20211104
  Receipt Date: 20211104
  Transmission Date: 20220303
  Serious: Yes (Hospitalization)
  Sender: FDA-Public Use
  Company Number: CH-ABBVIE-21K-151-4147937-00

PATIENT
  Age: 82 Year
  Sex: Male

DRUGS (4)
  1. CARBIDOPA\LEVODOPA [Suspect]
     Active Substance: CARBIDOPA\LEVODOPA
     Indication: Parkinson^s disease
     Route: 050
     Dates: start: 20200814
  2. CARBIDOPA\LEVODOPA [Suspect]
     Active Substance: CARBIDOPA\LEVODOPA
     Dosage: MD: 4.0 ML, CRD: 2.7 ML/H, CRN: 2.2 ML/H, ED: 1.8 ML,?24H THERAPY
     Route: 050
     Dates: start: 20210413, end: 20210413
  3. CARBIDOPA\LEVODOPA [Suspect]
     Active Substance: CARBIDOPA\LEVODOPA
     Dosage: MD: 4.0 ML, CRD: 3.0 ML/H, CRN: 2.2 ML/H, ED: 1.8 ML?24H THERAPY
     Route: 050
     Dates: start: 20210413, end: 20210529
  4. CARBIDOPA\LEVODOPA [Suspect]
     Active Substance: CARBIDOPA\LEVODOPA
     Dosage: MD: 4.0 ML, CRD: 2.7 ML/H, CRN: 2.2 ML/H, ED: 1.8 ML?24H THERAPY
     Route: 050
     Dates: start: 20210529

REACTIONS (4)
  - Speech disorder [Unknown]
  - Device connection issue [Recovered/Resolved]
  - Device dislocation [Recovered/Resolved]
  - Dysphagia [Not Recovered/Not Resolved]

NARRATIVE: CASE EVENT DATE: 20211001
